FAERS Safety Report 24788918 (Version 1)
Quarter: 2024Q4

REPORT INFORMATION
  Report Type: Spontaneous
  Country: US (occurrence: US)
  Receive Date: 20241230
  Receipt Date: 20241230
  Transmission Date: 20250114
  Serious: Yes (Other)
  Sender: BAYER HEALTHCARE LLC
  Company Number: US-BAYER-2024A180942

PATIENT
  Age: 64 Year

DRUGS (3)
  1. CORICIDIN HBP MAXIMUM STRENGTH NIGHTTIME COLD AND FLU [Suspect]
     Active Substance: ACETAMINOPHEN\DEXTROMETHORPHAN HYDROBROMIDE\DOXYLAMINE SUCCINATE
     Indication: Nasopharyngitis
     Dosage: ONE DOSE
     Route: 048
  2. CORICIDIN HBP MAXIMUM STRENGTH NIGHTTIME COLD AND FLU [Suspect]
     Active Substance: ACETAMINOPHEN\DEXTROMETHORPHAN HYDROBROMIDE\DOXYLAMINE SUCCINATE
     Indication: Hypersensitivity
  3. CORICIDIN HBP MAXIMUM STRENGTH NIGHTTIME COLD AND FLU [Suspect]
     Active Substance: ACETAMINOPHEN\DEXTROMETHORPHAN HYDROBROMIDE\DOXYLAMINE SUCCINATE
     Indication: Cough

REACTIONS (5)
  - Choking [Recovering/Resolving]
  - Oropharyngeal discomfort [Recovering/Resolving]
  - Vomiting [Recovering/Resolving]
  - Drug ineffective [Recovering/Resolving]
  - Cough [Recovering/Resolving]

NARRATIVE: CASE EVENT DATE: 20241213
